FAERS Safety Report 21529342 (Version 2)
Quarter: 2022Q4

REPORT INFORMATION
  Report Type: Spontaneous
  Country: US (occurrence: US)
  Receive Date: 20221031
  Receipt Date: 20221125
  Transmission Date: 20230112
  Serious: No
  Sender: FDA-Public Use
  Company Number: US-PFIZER INC-202201210329

PATIENT
  Age: 5 Year
  Sex: Female
  Weight: 34.02 kg

DRUGS (3)
  1. GENOTROPIN [Suspect]
     Active Substance: SOMATROPIN
     Indication: Hypopituitarism
     Dosage: 0.6 NIGHTLY
     Dates: start: 2022, end: 20221005
  2. HYDROCORTISONE [Concomitant]
     Active Substance: HYDROCORTISONE
     Dosage: 5 MG, DAILY
  3. LEVOTHYROXINE [Concomitant]
     Active Substance: LEVOTHYROXINE
     Dosage: 112MCG

REACTIONS (3)
  - Device defective [Unknown]
  - Drug dose omission by device [Unknown]
  - Expired device used [Unknown]

NARRATIVE: CASE EVENT DATE: 20220101
